FAERS Safety Report 17783356 (Version 2)
Quarter: 2020Q2

REPORT INFORMATION
  Report Type: Spontaneous
  Country: US (occurrence: US)
  Receive Date: 20200514
  Receipt Date: 20200515
  Transmission Date: 20200714
  Serious: No
  Sender: FDA-Public Use
  Company Number: US-PFIZER INC-2020191370

PATIENT
  Age: 58 Year
  Sex: Female

DRUGS (1)
  1. IBRANCE [Suspect]
     Active Substance: PALBOCICLIB
     Indication: BREAST CANCER FEMALE
     Dosage: 100MG DAILY FOR 21DAYS ON, 7 DAYS OFF DURING EACH CYCLE OF 28 DAYS

REACTIONS (10)
  - Hypoaesthesia [Unknown]
  - Myalgia [Unknown]
  - Fatigue [Recovering/Resolving]
  - Muscle spasms [Unknown]
  - Dry skin [Unknown]
  - Yellow skin [Unknown]
  - Skin exfoliation [Unknown]
  - Nasal dryness [Unknown]
  - Blister [Unknown]
  - Burning sensation [Unknown]
